FAERS Safety Report 4659740-1 (Version None)
Quarter: 2005Q2

REPORT INFORMATION
  Report Type: 
  Country: None (occurrence: None)
  Receive Date: 20050512
  Receipt Date: 20050503
  Transmission Date: 20051028
  Serious: Yes (Hospitalization)
  Sender: FDA-Public Use
  Company Number: US-JNJFOC-20050501420

PATIENT
  Sex: Male
  Weight: 98.43 kg

DRUGS (5)
  1. REMICADE [Suspect]
     Route: 042
  2. PREDNISONE [Concomitant]
  3. ASACOL [Concomitant]
  4. AZATHIOPRINE [Concomitant]
  5. COLAZAL [Concomitant]

REACTIONS (1)
  - ATRIAL FIBRILLATION [None]
